FAERS Safety Report 9016862 (Version 1)
Quarter: 2013Q1

REPORT INFORMATION
  Report Type: Spontaneous
  Country: GB (occurrence: GB)
  Receive Date: 20130117
  Receipt Date: 20130117
  Transmission Date: 20140127
  Serious: Yes (Hospitalization, Other)
  Sender: FDA-Public Use
  Company Number: GB-B.I. PHARMACEUTICALS,INC./RIDGEFIELD-2013-UK-00040UK

PATIENT
  Age: 9 Year
  Sex: Male
  Weight: 20 kg

DRUGS (17)
  1. CATAPRES [Suspect]
     Indication: DYSTONIA
     Route: 048
     Dates: start: 20121119
  2. CHLORAL HYDRATE [Suspect]
     Indication: DYSTONIA
     Route: 048
  3. DEXMEDETOMIDINE [Concomitant]
  4. DIAZEPAM [Concomitant]
  5. ERYTHROMYCIN [Concomitant]
  6. GABAPENTIN [Concomitant]
  7. LORAZEPAM [Concomitant]
  8. MACROGOL [Concomitant]
  9. OMEPRAZOLE [Concomitant]
  10. PARACETAMOL [Concomitant]
  11. PL 04917/0021 ACIDEX SUSPENSION [Concomitant]
  12. PROPOFOL [Concomitant]
  13. RANITIDINE [Concomitant]
  14. SODIUM PHOSPHATE [Concomitant]
  15. SODIUM PICOSULFATE [Concomitant]
  16. TOTAL PARENTRAL NUTRITION [Concomitant]
  17. TRIHEXYPHENIDYL [Concomitant]

REACTIONS (1)
  - Gastric haemorrhage [Unknown]
